FAERS Safety Report 7338232-5 (Version None)
Quarter: 2011Q1

REPORT INFORMATION
  Report Type: 
  Country: None (occurrence: None)
  Receive Date: 20110308
  Receipt Date: 20110223
  Transmission Date: 20110831
  Serious: Yes (Hospitalization, Congenital Anomaly)
  Sender: FDA-Public Use
  Company Number: PHHY2011GB14604

PATIENT

DRUGS (8)
  1. ARIPIPRAZOLE [Concomitant]
     Route: 064
  2. DICLOFENAC SODIUM [Concomitant]
     Route: 064
  3. FOLIC ACID [Concomitant]
     Route: 064
  4. ISPAGHULA HUSK [Concomitant]
  5. LANSOPRAZOLE [Concomitant]
     Route: 064
  6. PROPRANOLOL HYDROCHLORIDE [Concomitant]
     Route: 064
  7. LAMOTRIGINE [Suspect]
     Indication: GRAND MAL CONVULSION
     Dosage: UNK
     Route: 064
     Dates: start: 20080319
  8. SERTRALINE HYDROCHLORIDE [Concomitant]
     Route: 064

REACTIONS (2)
  - VENTRICULAR SEPTAL DEFECT [None]
  - DRUG EXPOSURE DURING PREGNANCY [None]
